FAERS Safety Report 7786532-7 (Version None)
Quarter: 2011Q3

REPORT INFORMATION
  Report Type: 
  Country: None (occurrence: None)
  Receive Date: 20110929
  Receipt Date: 20110923
  Transmission Date: 20111222
  Serious: Yes (Other)
  Sender: FDA-Public Use
  Company Number: US-GLAXOSMITHKLINE-A0945818A

PATIENT
  Age: 62 Year
  Sex: Male

DRUGS (6)
  1. DIAZEPAM [Concomitant]
  2. VOTRIENT [Suspect]
     Indication: RENAL CELL CARCINOMA
     Dosage: 800MG PER DAY
     Route: 048
     Dates: start: 20110907
  3. BLOOD PRESSURE MEDICATION [Concomitant]
     Indication: HYPERTENSION
  4. UNSPECIFIED MEDICATION [Concomitant]
     Indication: JOINT SWELLING
  5. DIABETES MEDICATION [Concomitant]
  6. ASPIRIN [Concomitant]

REACTIONS (6)
  - ANXIETY [None]
  - SKIN CHAPPED [None]
  - ILL-DEFINED DISORDER [None]
  - HAEMORRHAGE [None]
  - AGEUSIA [None]
  - FATIGUE [None]
